FAERS Safety Report 6125424-6 (Version None)
Quarter: 2009Q1

REPORT INFORMATION
  Report Type: 
  Country: None (occurrence: None)
  Receive Date: 20090319
  Receipt Date: 20090319
  Transmission Date: 20090719
  Serious: Yes (Hospitalization)
  Sender: FDA-Public Use
  Company Number: None

PATIENT
  Sex: Male
  Weight: 68.0396 kg

DRUGS (2)
  1. CISPLATIN [Suspect]
     Indication: HEAD AND NECK CANCER
     Dosage: 100 MG/M2 Q 3 WEEKS IV
     Route: 042
     Dates: start: 20090309
  2. ERLOTINIB [Suspect]
     Dosage: 150MG DAILY PO
     Route: 048

REACTIONS (1)
  - BLOOD CREATINE INCREASED [None]
